FAERS Safety Report 23301617 (Version 2)
Quarter: 2024Q2

REPORT INFORMATION
  Report Type: Spontaneous
  Country: DE (occurrence: DE)
  Receive Date: 20231215
  Receipt Date: 20240524
  Transmission Date: 20240715
  Serious: Yes (Hospitalization, Other)
  Sender: FDA-Public Use
  Company Number: DE-MLMSERVICE-20231201-4703807-1

PATIENT

DRUGS (1)
  1. DOXYCYCLINE [Suspect]
     Active Substance: DOXYCYCLINE\DOXYCYCLINE HYCLATE
     Indication: Rosacea
     Dosage: 40 MILLIGRAM
     Route: 048

REACTIONS (3)
  - Papilloedema [Recovering/Resolving]
  - Idiopathic intracranial hypertension [Recovering/Resolving]
  - Headache [Recovering/Resolving]
